FAERS Safety Report 8772878 (Version 1)
Quarter: 2012Q4

REPORT INFORMATION
  Report Type: 
  Country: US (occurrence: US)
  Receive Date: 20120907
  Receipt Date: 20120907
  Transmission Date: 20130627
  Serious: Yes (Life-Threatening, Congenital Anomaly, Other)
  Sender: FDA-Public Use
  Company Number: US-PFIZER INC-2012218940

PATIENT
  Sex: Female

DRUGS (1)
  1. EFFEXOR [Suspect]
     Dosage: UNK
     Route: 064

REACTIONS (2)
  - Maternal exposure timing unspecified [Unknown]
  - Hypoplastic left heart syndrome [Unknown]
